FAERS Safety Report 25277300 (Version 1)
Quarter: 2025Q2

REPORT INFORMATION
  Report Type: Report from Study
  Country: US (occurrence: US)
  Receive Date: 20250507
  Receipt Date: 20250507
  Transmission Date: 20250716
  Serious: Yes (Death)
  Sender: ROCHE
  Company Number: US-ROCHE-3172525

PATIENT
  Age: 83 Year
  Sex: Male

DRUGS (15)
  1. ESBRIET [Suspect]
     Active Substance: PIRFENIDONE
     Indication: Idiopathic pulmonary fibrosis
     Dosage: 1 PO TID WITH MEAL
     Route: 048
     Dates: start: 20190907
  2. ALLOPURINOL [Concomitant]
     Active Substance: ALLOPURINOL
  3. PRIMIDONE [Concomitant]
     Active Substance: PRIMIDONE
  4. FOLIC ACID [Concomitant]
     Active Substance: FOLIC ACID
  5. ROSUVASTATIN [Concomitant]
     Active Substance: ROSUVASTATIN
  6. COLCRYS [Concomitant]
     Active Substance: COLCHICINE
  7. MAGNESIUM [Concomitant]
     Active Substance: MAGNESIUM
  8. BYSTOLIC [Concomitant]
     Active Substance: NEBIVOLOL HYDROCHLORIDE
  9. IPRATROPIUM BROMIDE [Concomitant]
     Active Substance: IPRATROPIUM BROMIDE
  10. CETIRIZINE HCL [Concomitant]
     Active Substance: CETIRIZINE HYDROCHLORIDE
  11. BREO ELLIPTA [Concomitant]
     Active Substance: FLUTICASONE FUROATE\VILANTEROL TRIFENATATE
  12. MONTELUKAST [Concomitant]
     Active Substance: MONTELUKAST
  13. ACYCLOVIR [Concomitant]
     Active Substance: ACYCLOVIR
  14. BUMETANIDE [Concomitant]
     Active Substance: BUMETANIDE
  15. ARICEPT [Concomitant]
     Active Substance: DONEPEZIL HYDROCHLORIDE

REACTIONS (2)
  - Cough [Unknown]
  - Death [Fatal]

NARRATIVE: CASE EVENT DATE: 20241106
